FAERS Safety Report 7823364-5 (Version None)
Quarter: 2011Q4

REPORT INFORMATION
  Report Type: 
  Country: None (occurrence: None)
  Receive Date: 20111019
  Receipt Date: 20111007
  Transmission Date: 20120403
  Serious: Yes (Other)
  Sender: FDA-Public Use
  Company Number: US-PAR PHARMACEUTICAL, INC-2011SCPR003291

PATIENT

DRUGS (2)
  1. ATENOLOL [Concomitant]
     Indication: HYPERTENSION
     Dosage: 50 MG, A DAY
     Route: 048
  2. PROPAFENONE HCL [Suspect]
     Indication: ARRHYTHMIA
     Dosage: 1 DF, BID
     Route: 048
     Dates: start: 20111003, end: 20111004

REACTIONS (3)
  - DYSSTASIA [None]
  - SWOLLEN TONGUE [None]
  - MEMORY IMPAIRMENT [None]
